FAERS Safety Report 4714361-7 (Version None)
Quarter: 2005Q3

REPORT INFORMATION
  Report Type: 
  Country: None (occurrence: None)
  Receive Date: 20050714
  Receipt Date: 20050704
  Transmission Date: 20060218
  Serious: Yes (Hospitalization, Disabling)
  Sender: FDA-Public Use
  Company Number: IT-ROCHE-409627

PATIENT
  Age: 28 Year
  Sex: Male
  Weight: 95 kg

DRUGS (1)
  1. PEG-INTERFERON ALFA 2A (RO 25-8310) [Suspect]
     Dosage: 180 MCG/0.5 ML TAKEN WEEKLY. DOSAGE FORM: PREFILLED SYRINGE.
     Route: 058
     Dates: start: 20050422

REACTIONS (1)
  - FACIAL PALSY [None]
